FAERS Safety Report 5491911-7 (Version None)
Quarter: 2007Q4

REPORT INFORMATION
  Report Type: 
  Country: None (occurrence: None)
  Receive Date: 20071022
  Receipt Date: 20071015
  Transmission Date: 20080405
  Serious: Yes (Other)
  Sender: FDA-Public Use
  Company Number: A0687623A

PATIENT
  Sex: Female

DRUGS (2)
  1. CONTAC 12 HOUR [Suspect]
     Indication: DRUG USE FOR UNKNOWN INDICATION
  2. CONTAC [Suspect]
     Indication: DRUG USE FOR UNKNOWN INDICATION

REACTIONS (13)
  - ABDOMINAL PAIN UPPER [None]
  - ABNORMAL BEHAVIOUR [None]
  - ARTHRALGIA [None]
  - DEPENDENCE [None]
  - DIZZINESS [None]
  - FEAR [None]
  - GASTRIC DISORDER [None]
  - HYPERHIDROSIS [None]
  - PAIN IN EXTREMITY [None]
  - PHARYNGOLARYNGEAL PAIN [None]
  - SALIVARY GLAND DISORDER [None]
  - SWELLING [None]
  - THERAPEUTIC RESPONSE UNEXPECTED [None]
